FAERS Safety Report 13191496 (Version 6)
Quarter: 2018Q3

REPORT INFORMATION
  Report Type: Report from Study
  Country: PL (occurrence: PL)
  Receive Date: 20170207
  Receipt Date: 20180925
  Transmission Date: 20181010
  Serious: Yes (Hospitalization)
  Sender: FDA-Public Use
  Company Number: PL-BIOGEN-2017BI00348378

PATIENT
  Age: 45 Year
  Sex: Female
  Weight: 72 kg

DRUGS (6)
  1. DACLIZUMAB HYP [Suspect]
     Active Substance: DACLIZUMAB
     Route: 058
     Dates: start: 20170131
  2. AUGMENTIN [Concomitant]
     Active Substance: AMOXICILLIN\CLAVULANATE POTASSIUM
     Indication: STOMATITIS
     Route: 048
     Dates: start: 20161230, end: 20170108
  3. METRONIDAZOL [Concomitant]
     Active Substance: METRONIDAZOLE
     Indication: STOMATITIS
     Route: 065
  4. DACLIZUMAB HYP [Suspect]
     Active Substance: DACLIZUMAB
     Indication: MULTIPLE SCLEROSIS
     Route: 058
     Dates: start: 20140304, end: 20161205
  5. CORNEREGEL [Concomitant]
     Active Substance: DEXPANTHENOL
     Indication: KERATITIS
     Route: 047
     Dates: start: 20161230, end: 20170108
  6. TRILAC [Concomitant]
     Indication: ANTIBIOTIC PROPHYLAXIS
     Route: 048
     Dates: start: 20161202, end: 20170108

REACTIONS (1)
  - Psoriatic arthropathy [Recovered/Resolved]

NARRATIVE: CASE EVENT DATE: 20170112
